FAERS Safety Report 18701538 (Version 1)
Quarter: 2021Q1

REPORT INFORMATION
  Report Type: Spontaneous
  Country: US (occurrence: US)
  Receive Date: 20210105
  Receipt Date: 20210105
  Transmission Date: 20210419
  Serious: Yes (Hospitalization, Other)
  Sender: FDA-Public Use
  Company Number: US-PFIZER INC-2020520596

PATIENT
  Age: 67 Year
  Sex: Female
  Weight: 58.05 kg

DRUGS (8)
  1. XELJANZ XR [Suspect]
     Active Substance: TOFACITINIB CITRATE
     Indication: RHEUMATOID ARTHRITIS
     Dosage: UNK, ALTERNATE DAY (HALF TABLET (1 IN 1 EVERY OTHER DAY)
     Route: 048
     Dates: start: 2018, end: 20201113
  2. XELJANZ XR [Suspect]
     Active Substance: TOFACITINIB CITRATE
     Dosage: UNK, 1X/DAY (HALF OF 11 MG TABLET AT LUNCH)
     Route: 048
     Dates: start: 20201118, end: 20201118
  3. GABAPENTIN. [Concomitant]
     Active Substance: GABAPENTIN
     Indication: FORMICATION
     Dosage: UNK
  4. VERAPAMIL [Concomitant]
     Active Substance: VERAPAMIL HYDROCHLORIDE
     Indication: MIGRAINE
     Dosage: 240 MG, 1X/DAY (ER)
     Route: 048
  5. AMITRIPTYLINE HCL [Concomitant]
     Active Substance: AMITRIPTYLINE
     Indication: MIGRAINE
     Dosage: 25 MG, 1X/DAY
     Route: 048
     Dates: start: 2005
  6. PILOCARPINE [PILOCARPINE NITRATE] [Suspect]
     Active Substance: PILOCARPINE NITRATE
     Indication: SJOGREN^S SYNDROME
     Dosage: UNK
  7. ESCITALOPRAM [Concomitant]
     Active Substance: ESCITALOPRAM OXALATE
     Indication: ANXIETY
     Dosage: 5 MG, DAILY
     Route: 048
     Dates: start: 2005
  8. PROLIA [Concomitant]
     Active Substance: DENOSUMAB
     Indication: OSTEOPOROSIS
     Dosage: UNK (1 IN 6 M)
     Dates: start: 2016

REACTIONS (11)
  - Hyperhidrosis [Recovered/Resolved]
  - Weight decreased [Recovered/Resolved]
  - Intentional product misuse [Unknown]
  - Wrong technique in product usage process [Unknown]
  - Nausea [Recovered/Resolved]
  - Formication [Recovering/Resolving]
  - Paraesthesia [Recovering/Resolving]
  - Migraine [Unknown]
  - Illness [Unknown]
  - Cataract [Recovered/Resolved]
  - Pruritus [Recovered/Resolved]

NARRATIVE: CASE EVENT DATE: 2016
